FAERS Safety Report 9736700 (Version 2)
Quarter: 2015Q3

REPORT INFORMATION
  Report Type: Spontaneous
  Country: US (occurrence: US)
  Receive Date: 20131206
  Receipt Date: 20150804
  Transmission Date: 20151125
  Serious: No
  Sender: FDA-Public Use
  Company Number: US-GILEAD-2009-0023889

PATIENT
  Age: 62 Year
  Sex: Female
  Weight: 98.43 kg

DRUGS (10)
  1. COD LIVER OIL [Concomitant]
     Active Substance: COD LIVER OIL
  2. CENTRUM CHEWABLE [Concomitant]
  3. METOPROLOL [Concomitant]
     Active Substance: METOPROLOL
  4. OMEPRAZOLE. [Concomitant]
     Active Substance: OMEPRAZOLE
  5. ADVAIR HFA [Concomitant]
     Active Substance: FLUTICASONE PROPIONATE\SALMETEROL XINAFOATE
  6. BENADRYL 1% CREAM [Concomitant]
  7. HYDROCORTISONE. [Concomitant]
     Active Substance: HYDROCORTISONE
  8. OXYGEN. [Concomitant]
     Active Substance: OXYGEN
  9. LETAIRIS [Suspect]
     Active Substance: AMBRISENTAN
     Indication: PULMONARY ARTERIAL HYPERTENSION
     Route: 048
     Dates: start: 20090808
  10. SPIRIVA [Concomitant]
     Active Substance: TIOTROPIUM BROMIDE MONOHYDRATE

REACTIONS (1)
  - Headache [Unknown]
